FAERS Safety Report 21719890 (Version 5)
Quarter: 2024Q3

REPORT INFORMATION
  Report Type: Report from Study
  Country: SE (occurrence: SE)
  Receive Date: 20221213
  Receipt Date: 20240930
  Transmission Date: 20241017
  Serious: Yes (Other)
  Sender: TAKEDA
  Company Number: SE-TAKEDA-2022TUS095251

PATIENT
  Sex: Male

DRUGS (25)
  1. TEDUGLUTIDE [Suspect]
     Active Substance: TEDUGLUTIDE
     Indication: Short-bowel syndrome
     Dosage: 2.8 MILLIGRAM, QD
     Route: 042
     Dates: start: 20200312, end: 20240718
  2. TEDUGLUTIDE [Suspect]
     Active Substance: TEDUGLUTIDE
     Indication: Short-bowel syndrome
     Dosage: 2.8 MILLIGRAM, QD
     Route: 042
     Dates: start: 20200312, end: 20240718
  3. TEDUGLUTIDE [Suspect]
     Active Substance: TEDUGLUTIDE
     Indication: Short-bowel syndrome
     Dosage: 2.8 MILLIGRAM, QD
     Route: 042
     Dates: start: 20200312, end: 20240718
  4. TEDUGLUTIDE [Suspect]
     Active Substance: TEDUGLUTIDE
     Indication: Short-bowel syndrome
     Dosage: 2.8 MILLIGRAM, QD
     Route: 042
     Dates: start: 20200312, end: 20240718
  5. TEDUGLUTIDE [Suspect]
     Active Substance: TEDUGLUTIDE
     Dosage: 4.4 MILLIGRAM, 4/WEEK
     Route: 042
     Dates: start: 20240718
  6. TEDUGLUTIDE [Suspect]
     Active Substance: TEDUGLUTIDE
     Dosage: 4.4 MILLIGRAM, 4/WEEK
     Route: 042
     Dates: start: 20240718
  7. TEDUGLUTIDE [Suspect]
     Active Substance: TEDUGLUTIDE
     Dosage: 4.4 MILLIGRAM, 4/WEEK
     Route: 042
     Dates: start: 20240718
  8. TEDUGLUTIDE [Suspect]
     Active Substance: TEDUGLUTIDE
     Dosage: 4.4 MILLIGRAM, 4/WEEK
     Route: 042
     Dates: start: 20240718
  9. SOLVEZINK [Concomitant]
     Indication: Zinc deficiency
     Dosage: 0.50 DOSAGE FORM, QD
     Route: 048
     Dates: start: 20210618
  10. BEVIPLEX FORTE [Concomitant]
     Indication: Crohn^s disease
     Dosage: 1 DOSAGE FORM, BID
     Route: 048
     Dates: start: 20200108
  11. BEVIPLEX FORTE [Concomitant]
     Indication: Short-bowel syndrome
  12. BEVIPLEX FORTE [Concomitant]
     Indication: Vitamin B complex deficiency
  13. BUDESONIDE [Concomitant]
     Active Substance: BUDESONIDE
     Indication: Dysphagia
     Dosage: 1 MILLIGRAM, BID
     Route: 048
     Dates: start: 20220615, end: 20220728
  14. BUDESONIDE [Concomitant]
     Active Substance: BUDESONIDE
     Dosage: 1 MILLIGRAM, BID
     Route: 048
     Dates: start: 20211201, end: 20220112
  15. ESOMEPRAZOLE [Concomitant]
     Active Substance: ESOMEPRAZOLE
     Indication: Oesophagitis
     Dosage: 40 MILLIGRAM, BID
  16. LOPERAMIDE [Concomitant]
     Active Substance: LOPERAMIDE
     Indication: Diarrhoea
     Dosage: 2 MILLIGRAM
  17. DETREMIN [Concomitant]
     Indication: Vitamin D deficiency
     Dosage: UNK UNK, QD
  18. CALCIUM CARBONATE\CHOLECALCIFEROL [Concomitant]
     Active Substance: CALCIUM CARBONATE\CHOLECALCIFEROL
     Indication: Calcium deficiency
     Dosage: 1 DOSAGE FORM, QD
  19. CALCIUM CARBONATE\CHOLECALCIFEROL [Concomitant]
     Active Substance: CALCIUM CARBONATE\CHOLECALCIFEROL
     Indication: Vitamin D deficiency
  20. RETINOL [Concomitant]
     Active Substance: RETINOL
     Indication: Vitamin A deficiency
     Dosage: 1 DOSAGE FORM, QD
  21. INFLECTRA [Concomitant]
     Active Substance: INFLIXIMAB-DYYB
     Indication: Crohn^s disease
     Dosage: 300 MILLIGRAM, Q6WEEKS
     Route: 042
  22. PROPIOMAZINE [Concomitant]
     Active Substance: PROPIOMAZINE
     Indication: Sleep disorder
     Dosage: 25 MILLIGRAM
  23. HYDROXOCOBALAMIN ALTERNOVA [Concomitant]
     Indication: Vitamin B12 deficiency
  24. THIAMINE [Concomitant]
     Active Substance: THIAMINE
     Indication: Optic neuropathy
     Dosage: 200 MILLIGRAM, SINGLE
     Route: 042
     Dates: start: 20230330, end: 20230330
  25. PANTOPRAZOLE SODIUM [Concomitant]
     Active Substance: PANTOPRAZOLE SODIUM
     Indication: Gastritis
     Dosage: 20 MILLIGRAM, BID
     Route: 048
     Dates: start: 20230119

REACTIONS (2)
  - Squamous cell carcinoma of skin [Recovered/Resolved]
  - COVID-19 [Recovered/Resolved]

NARRATIVE: CASE EVENT DATE: 20220101
